FAERS Safety Report 24884474 (Version 1)
Quarter: 2025Q1

REPORT INFORMATION
  Report Type: Spontaneous
  Country: BR (occurrence: BR)
  Receive Date: 20250124
  Receipt Date: 20250124
  Transmission Date: 20250409
  Serious: Yes (Other)
  Sender: ASTELLAS
  Company Number: BR-PFIZER INC-PV202500008938

PATIENT
  Age: 70 Year
  Sex: Male

DRUGS (1)
  1. PADCEV [Suspect]
     Active Substance: ENFORTUMAB VEDOTIN-EJFV
     Indication: Product used for unknown indication
     Route: 065
     Dates: start: 202403

REACTIONS (4)
  - Xerophthalmia [Unknown]
  - Vision blurred [Unknown]
  - Skin reaction [Unknown]
  - Ulcer [Unknown]

NARRATIVE: CASE EVENT DATE: 20240101
